FAERS Safety Report 9277477 (Version 2)
Quarter: 2013Q2

REPORT INFORMATION
  Report Type: Spontaneous
  Country: AR (occurrence: AR)
  Receive Date: 20130508
  Receipt Date: 20130516
  Transmission Date: 20140414
  Serious: Yes (Hospitalization)
  Sender: FDA-Public Use
  Company Number: AR-NOVOPROD-377100

PATIENT
  Age: 30 Year
  Sex: Female
  Weight: 109 kg

DRUGS (7)
  1. LEVEMIR FLEXPEN [Suspect]
     Indication: TYPE 2 DIABETES MELLITUS
     Dosage: 65 IU, QD
     Route: 058
     Dates: start: 20120510
  2. LEVEMIR FLEXPEN [Suspect]
     Dosage: 70 IU, QD
     Route: 058
  3. LEVEMIR FLEXPEN [Suspect]
     Dosage: 76 IU, QD
     Route: 065
     Dates: start: 20120918
  4. LEVEMIR FLEXPEN [Suspect]
     Dosage: 88 IU, QD
     Route: 058
     Dates: start: 20121218
  5. VICTOZA [Suspect]
     Indication: TYPE 2 DIABETES MELLITUS
     Dosage: 1.2 MG, QD
     Route: 058
     Dates: start: 201205, end: 20120918
  6. NOVORAPID [Suspect]
     Indication: TYPE 2 DIABETES MELLITUS
     Dosage: UNKNOWN
     Route: 065
  7. ROSUVASTATIN [Concomitant]
     Indication: DYSLIPIDAEMIA
     Dosage: 5 MG, QD
     Route: 065
     Dates: start: 201205, end: 20120918

REACTIONS (3)
  - Pre-eclampsia [Recovered/Resolved]
  - Pre-eclampsia [Recovered/Resolved]
  - Exposure during pregnancy [Recovered/Resolved]
